FAERS Safety Report 7471958-1 (Version None)
Quarter: 2011Q2

REPORT INFORMATION
  Report Type: 
  Country: None (occurrence: None)
  Receive Date: 20110511
  Receipt Date: 20100813
  Transmission Date: 20111010
  Serious: No
  Sender: FDA-Public Use
  Company Number: A0876861A

PATIENT
  Age: 47 Year
  Sex: Female

DRUGS (1)
  1. TYKERB [Suspect]
     Dosage: 1000MG PER DAY

REACTIONS (7)
  - VOMITING [None]
  - DYSPEPSIA [None]
  - ASTHENIA [None]
  - GAIT DISTURBANCE [None]
  - DIARRHOEA [None]
  - NAUSEA [None]
  - FATIGUE [None]
